FAERS Safety Report 17111628 (Version 1)
Quarter: 2019Q4

REPORT INFORMATION
  Report Type: Spontaneous
  Country: US (occurrence: US)
  Receive Date: 20191203
  Receipt Date: 20191203
  Transmission Date: 20200122
  Serious: No
  Sender: FDA-Public Use
  Company Number: None

PATIENT
  Sex: Female

DRUGS (7)
  1. ESBRIET [Suspect]
     Active Substance: PIRFENIDONE
     Route: 048
  2. FLUOXETINE CAP 40MG [Concomitant]
     Dates: start: 20180713
  3. ATORVASTATIN TAB 10MG [Concomitant]
  4. PROAIR HFA AER [Concomitant]
     Dates: start: 20180713
  5. ANORO ELLIPT AER 62.5-25 [Concomitant]
     Dates: start: 20180713
  6. PRAMIPEXOLE TAB 0.125MG [Concomitant]
     Dates: start: 20180713
  7. OMEPRAZOLE TAB 20MG [Concomitant]
     Dates: start: 20180713

REACTIONS (1)
  - Faeces soft [None]
